APPROVED DRUG PRODUCT: CLINDAMYCIN PHOSPHATE
Active Ingredient: CLINDAMYCIN PHOSPHATE
Strength: EQ 1% BASE
Dosage Form/Route: SOLUTION;TOPICAL
Application: A203343 | Product #001
Applicant: PH HEALTH LTD
Approved: May 29, 2015 | RLD: No | RS: No | Type: DISCN